FAERS Safety Report 14094198 (Version 1)
Quarter: 2017Q4

REPORT INFORMATION
  Report Type: Spontaneous
  Country: US (occurrence: US)
  Receive Date: 20171016
  Receipt Date: 20171016
  Transmission Date: 20180321
  Serious: No
  Sender: FDA-Public Use
  Company Number: US-AMGEN-USASP2017026401

PATIENT
  Age: 80 Year
  Sex: Male

DRUGS (10)
  1. WARFARIN [Concomitant]
     Active Substance: WARFARIN
  2. PROLIA [Suspect]
     Active Substance: DENOSUMAB
     Indication: OSTEOPOROSIS
     Dosage: UNK
     Route: 065
     Dates: start: 201612
  3. LOSARTAN. [Concomitant]
     Active Substance: LOSARTAN
  4. CARVEDILOL. [Concomitant]
     Active Substance: CARVEDILOL
  5. BUMETANIDE. [Concomitant]
     Active Substance: BUMETANIDE
  6. CALCIUM [Concomitant]
     Active Substance: CALCIUM
  7. HCTZ [Concomitant]
     Active Substance: HYDROCHLOROTHIAZIDE
  8. VITAMIN D3 [Concomitant]
     Active Substance: CHOLECALCIFEROL
  9. VITAMINS [Concomitant]
     Active Substance: VITAMINS
  10. SPIRONOLACTONE. [Concomitant]
     Active Substance: SPIRONOLACTONE

REACTIONS (2)
  - Peripheral swelling [Unknown]
  - Dyspnoea [Unknown]
